FAERS Safety Report 6818524-6 (Version None)
Quarter: 2010Q3

REPORT INFORMATION
  Report Type: 
  Country: None (occurrence: None)
  Receive Date: 20100706
  Receipt Date: 20080514
  Transmission Date: 20110219
  Serious: No
  Sender: FDA-Public Use
  Company Number: US-PFIZER INC-2008041527

PATIENT
  Sex: Female
  Weight: 83.91 kg

DRUGS (1)
  1. ZITHROMAX [Suspect]
     Indication: UPPER RESPIRATORY TRACT INFECTION
     Dates: start: 20080101, end: 20080101

REACTIONS (5)
  - BURNING SENSATION [None]
  - ERYTHEMA NODOSUM [None]
  - LOCAL SWELLING [None]
  - PRURITUS [None]
  - URTICARIA [None]
